FAERS Safety Report 14635127 (Version 1)
Quarter: 2018Q1

REPORT INFORMATION
  Report Type: Spontaneous
  Country: US (occurrence: US)
  Receive Date: 20180314
  Receipt Date: 20180314
  Transmission Date: 20180509
  Serious: Yes (Hospitalization)
  Sender: FDA-Public Use
  Company Number: US-GLAXOSMITHKLINE-US2018043247

PATIENT
  Sex: Male

DRUGS (3)
  1. VENTOLIN HFA [Suspect]
     Active Substance: ALBUTEROL SULFATE
     Indication: CHRONIC OBSTRUCTIVE PULMONARY DISEASE
     Route: 055
  2. ANORO ELLIPTA [Concomitant]
     Active Substance: UMECLIDINIUM BROMIDE\VILANTEROL TRIFENATATE
  3. NICOTINE TRANSDERMAL SYSTEM [Concomitant]
     Active Substance: NICOTINE

REACTIONS (6)
  - Oxygen saturation decreased [Recovering/Resolving]
  - Tobacco user [Unknown]
  - Chronic obstructive pulmonary disease [Recovering/Resolving]
  - Hypertension [Recovering/Resolving]
  - Drug ineffective for unapproved indication [Recovering/Resolving]
  - Product use in unapproved indication [Unknown]
